FAERS Safety Report 13242846 (Version 1)
Quarter: 2017Q1

REPORT INFORMATION
  Report Type: Spontaneous
  Country: US (occurrence: US)
  Receive Date: 20170216
  Receipt Date: 20170216
  Transmission Date: 20170428
  Serious: No
  Sender: FDA-Public Use
  Company Number: None

PATIENT
  Age: 30 Year
  Sex: Female

DRUGS (1)
  1. PEPCID [Suspect]
     Active Substance: FAMOTIDINE
     Indication: DYSPEPSIA
     Route: 042

REACTIONS (4)
  - Dizziness [None]
  - Palpitations [None]
  - Rhinorrhoea [None]
  - Dyspnoea [None]

NARRATIVE: CASE EVENT DATE: 20170215
